FAERS Safety Report 8189681 (Version 2)
Quarter: 2012Q4

REPORT INFORMATION
  Report Type: 
  Country: PR (occurrence: US)
  Receive Date: 20111019
  Receipt Date: 20121121
  Transmission Date: 20130627
  Serious: No
  Sender: FDA-Public Use
  Company Number: US-BRISTOL-MYERS SQUIBB COMPANY-15321078

PATIENT
  Age: 59 Year
  Sex: Male
  Weight: 72.11 kg

DRUGS (1)
  1. AVALIDE [Suspect]
     Indication: HYPERTENSION
     Dosage: 1 DF= 300/25mg
Then reduced to half
Duration: More than 5 yrs
Interrptd for 2 wks
     Dates: end: 201009

REACTIONS (6)
  - Hypotension [Unknown]
  - Erectile dysfunction [Unknown]
  - Musculoskeletal pain [Unknown]
  - Asthenia [Unknown]
  - Oedema peripheral [Unknown]
  - Joint swelling [Unknown]
